FAERS Safety Report 8339413-4 (Version None)
Quarter: 2012Q2

REPORT INFORMATION
  Report Type: 
  Country: None (occurrence: None)
  Receive Date: 20120507
  Receipt Date: 20120425
  Transmission Date: 20120825
  Serious: Yes (Hospitalization)
  Sender: FDA-Public Use
  Company Number: FR-JNJFOC-20120413207

PATIENT
  Age: 56 Year
  Sex: Male

DRUGS (2)
  1. LEFLUNOMIDE [Concomitant]
     Indication: POLYARTHRITIS
  2. REMICADE [Suspect]
     Indication: POLYARTHRITIS
     Route: 042

REACTIONS (2)
  - DIFFUSE LARGE B-CELL LYMPHOMA [None]
  - DRUG INEFFECTIVE [None]
